FAERS Safety Report 20460817 (Version 3)
Quarter: 2022Q2

REPORT INFORMATION
  Report Type: Other
  Country: JP (occurrence: JP)
  Receive Date: 20220211
  Receipt Date: 20220620
  Transmission Date: 20220720
  Serious: Yes (Life-Threatening, Hospitalization, Other)
  Sender: FDA-Public Use
  Company Number: JP-CHUGAI-A2020018673ROCHE

PATIENT
  Age: 1 Year
  Sex: Female
  Weight: 7.1 kg

DRUGS (28)
  1. VEMURAFENIB [Suspect]
     Active Substance: VEMURAFENIB
     Indication: Langerhans^ cell histiocytosis
     Dosage: 150 MILLIGRAM, QD
     Route: 050
     Dates: start: 20190122, end: 20200610
  2. VEMURAFENIB [Suspect]
     Active Substance: VEMURAFENIB
     Dosage: 180 MILLIGRAM, QD
     Route: 050
     Dates: start: 20200611, end: 20201008
  3. VEMURAFENIB [Suspect]
     Active Substance: VEMURAFENIB
     Dosage: 180 MILLIGRAM, QD
     Route: 050
     Dates: start: 20201010, end: 20201020
  4. VEMURAFENIB [Suspect]
     Active Substance: VEMURAFENIB
     Dosage: 200 MILLIGRAM, QD
     Route: 050
     Dates: start: 20201021, end: 20201117
  5. VEMURAFENIB [Suspect]
     Active Substance: VEMURAFENIB
     Dosage: 200 MILLIGRAM, QD
     Route: 050
     Dates: start: 20201121, end: 20210519
  6. VEMURAFENIB [Suspect]
     Active Substance: VEMURAFENIB
     Dosage: 120 MILLIGRAM, QD
     Route: 050
     Dates: start: 20210520, end: 20210929
  7. VEMURAFENIB [Suspect]
     Active Substance: VEMURAFENIB
     Dosage: 30 MILLIGRAM, QD
     Route: 050
     Dates: start: 20210930, end: 20211113
  8. FLUDARA [Concomitant]
     Active Substance: FLUDARABINE PHOSPHATE
     Indication: Langerhans^ cell histiocytosis
     Dosage: 12 MILLIGRAM, QD
     Route: 041
     Dates: start: 20201112, end: 20201116
  9. ALKERAN [Concomitant]
     Active Substance: MELPHALAN
     Indication: Langerhans^ cell histiocytosis
     Dosage: 33 MILLIGRAM, QD
     Route: 041
     Dates: start: 20201113, end: 20201116
  10. DEXTROSE\SODIUM CHLORIDE\SODIUM LACTATE [Concomitant]
     Active Substance: DEXTROSE\SODIUM CHLORIDE\SODIUM LACTATE
     Indication: Langerhans^ cell histiocytosis
     Route: 041
     Dates: start: 20200215, end: 20200218
  11. PREDNISOLONE [Concomitant]
     Active Substance: PREDNISOLONE
     Indication: Langerhans^ cell histiocytosis
     Dosage: 10 MILLIGRAM, QD
     Route: 048
     Dates: start: 20201028, end: 20210519
  12. NEORAL [Concomitant]
     Active Substance: CYCLOSPORINE
     Indication: Langerhans^ cell histiocytosis
     Dosage: 120 MILLIGRAM, QD
     Route: 048
     Dates: start: 20201221, end: 20210112
  13. DEXAMETHASONE [Concomitant]
     Active Substance: DEXAMETHASONE
     Indication: Langerhans^ cell histiocytosis
     Dosage: 4 MILLIGRAM, QD
     Route: 041
     Dates: start: 20200930, end: 20201028
  14. CYCLOSPORINE [Concomitant]
     Active Substance: CYCLOSPORINE
     Indication: Langerhans^ cell histiocytosis
     Dosage: 40 MILLIGRAM, QD
     Route: 041
     Dates: start: 20201119, end: 20210101
  15. FILGRASTIM [Concomitant]
     Active Substance: FILGRASTIM
     Indication: Langerhans^ cell histiocytosis
     Dosage: 150 MICROGRAM, QD
     Route: 041
     Dates: start: 20201120, end: 202012
  16. SULFAMETHOXAZOLE\TRIMETHOPRIM [Concomitant]
     Active Substance: SULFAMETHOXAZOLE\TRIMETHOPRIM
     Indication: Prophylaxis
     Route: 048
     Dates: start: 20190604, end: 20200415
  17. URSO [Concomitant]
     Active Substance: URSODIOL
     Indication: Prophylaxis
     Dosage: 100 MILLIGRAM, QD
     Route: 048
     Dates: start: 20201105, end: 20210204
  18. FLUCONAZOLE [Concomitant]
     Active Substance: FLUCONAZOLE
     Indication: Prophylaxis
     Route: 048
     Dates: start: 20190621, end: 20200218
  19. ACYCLOVIR [Concomitant]
     Active Substance: ACYCLOVIR
     Indication: Prophylaxis
     Dosage: 200 MILLIGRAM, QD
     Route: 048
     Dates: start: 20201109, end: 20201126
  20. POLYMYXIN B SULFATE [Concomitant]
     Active Substance: POLYMYXIN B SULFATE
     Indication: Prophylaxis
     Dosage: 505 UNK
     Route: 048
     Dates: start: 20201113, end: 20201126
  21. MILRINONE [Concomitant]
     Active Substance: MILRINONE
     Indication: Prophylaxis
     Dosage: 12 MILLIGRAM, QD
     Route: 041
     Dates: start: 20210111, end: 20210122
  22. CARBOCYSTEINE LYSINE [Concomitant]
     Active Substance: CARBOCYSTEINE LYSINE
  23. ASVERIN (TIPEPIDINE HIBENZATE) [Concomitant]
     Active Substance: TIPEPIDINE HIBENZATE
     Route: 048
     Dates: start: 20200131, end: 20200220
  24. MUCOSAL-L [Concomitant]
     Route: 048
     Dates: start: 20200131, end: 20200220
  25. PRANLUKAST [Concomitant]
     Active Substance: PRANLUKAST
     Route: 048
     Dates: start: 20200131, end: 20200220
  26. VORICONAZOLE [Concomitant]
     Active Substance: VORICONAZOLE
     Dosage: 90 MILLIGRAM, QD
     Route: 048
     Dates: start: 20210112
  27. CEFEPIME HYDROCHLORIDE [Concomitant]
     Active Substance: CEFEPIME HYDROCHLORIDE
     Dosage: 1350 MILLIGRAM, QD
     Route: 041
     Dates: start: 20200905, end: 20201013
  28. MEROPENEM [Concomitant]
     Active Substance: MEROPENEM
     Dosage: 1200 MILLIGRAM, QD
     Route: 041
     Dates: start: 20201121, end: 20201205

REACTIONS (8)
  - Thrombotic microangiopathy [Recovering/Resolving]
  - Acute respiratory distress syndrome [Recovered/Resolved]
  - Aspiration [Recovered/Resolved]
  - Venoocclusive liver disease [Recovering/Resolving]
  - Fungal infection [Recovered/Resolved]
  - Sepsis [Recovered/Resolved]
  - Incorrect route of product administration [Unknown]
  - Off label use [Unknown]

NARRATIVE: CASE EVENT DATE: 20200218
